FAERS Safety Report 7010169-0 (Version None)
Quarter: 2010Q3

REPORT INFORMATION
  Report Type: 
  Country: None (occurrence: None)
  Receive Date: 20100923
  Receipt Date: 20100915
  Transmission Date: 20110219
  Serious: Yes (Disabling, Other)
  Sender: FDA-Public Use
  Company Number: US-PFIZER INC-2009238460

PATIENT
  Sex: Female
  Weight: 44 kg

DRUGS (3)
  1. CHANTIX [Suspect]
     Indication: SMOKING CESSATION THERAPY
     Dosage: UNK
     Dates: start: 20080101, end: 20080101
  2. CHANTIX [Suspect]
     Dosage: UNK MG, UNK
     Route: 048
     Dates: start: 20100801, end: 20100801
  3. SPIRIVA [Concomitant]
     Indication: EMPHYSEMA
     Dosage: UNK
     Route: 055
     Dates: start: 20080101

REACTIONS (1)
  - WEIGHT DECREASED [None]
